FAERS Safety Report 25055326 (Version 1)
Quarter: 2025Q1

REPORT INFORMATION
  Report Type: Spontaneous
  Country: FR (occurrence: FR)
  Receive Date: 20250308
  Receipt Date: 20250308
  Transmission Date: 20250408
  Serious: Yes (Hospitalization)
  Sender: ACCORD
  Company Number: None

PATIENT
  Age: 65 Year
  Sex: Male
  Weight: 97 kg

DRUGS (20)
  1. AZACITIDINE [Suspect]
     Active Substance: AZACITIDINE
     Indication: Myelodysplastic syndrome
     Dates: start: 20220214, end: 20221130
  2. NEORAL [Suspect]
     Active Substance: CYCLOSPORINE
     Indication: Immunosuppression
     Dates: start: 20221201, end: 20230108
  3. RITUXIMAB [Suspect]
     Active Substance: RITUXIMAB
     Indication: Epstein-Barr virus infection reactivation
     Dates: start: 20230117, end: 20230131
  4. RUXOLITINIB [Suspect]
     Active Substance: RUXOLITINIB
     Indication: Acute graft versus host disease
     Dosage: STRENGTH: 5 MG
     Dates: start: 20230627, end: 20240326
  5. VENETOCLAX [Suspect]
     Active Substance: VENETOCLAX
     Indication: Myelodysplastic syndrome
     Dates: start: 20220629, end: 20221130
  6. ACTRAPID [Concomitant]
     Active Substance: INSULIN HUMAN
     Indication: Insulin-requiring type 2 diabetes mellitus
  7. AMLODIPINE BESYLATE [Concomitant]
     Active Substance: AMLODIPINE BESYLATE
     Indication: Hypertension
     Dosage: STRENGTH: 5 MG
  8. BACTRIM [Concomitant]
     Active Substance: SULFAMETHOXAZOLE\TRIMETHOPRIM
     Indication: Antifungal prophylaxis
  9. LEUCOVORIN CALCIUM [Concomitant]
     Active Substance: LEUCOVORIN CALCIUM
     Indication: Vitamin supplementation
     Dosage: STRENGTH: 25 MG
  10. PANTOPRAZOLE [Concomitant]
     Active Substance: PANTOPRAZOLE
     Indication: Product used for unknown indication
  11. INSULIN GLARGINE [Concomitant]
     Active Substance: INSULIN GLARGINE
     Indication: Insulin-requiring type 2 diabetes mellitus
  12. VALACYCLOVIR HYDROCHLORIDE [Concomitant]
     Active Substance: VALACYCLOVIR HYDROCHLORIDE
     Indication: Opportunistic infection prophylaxis
  13. ZOPICLONE [Concomitant]
     Active Substance: ZOPICLONE
     Indication: Insomnia
  14. NEORAL [Suspect]
     Active Substance: CYCLOSPORINE
     Indication: Immunosuppression
     Dates: start: 20230109, end: 20230123
  15. NEORAL [Suspect]
     Active Substance: CYCLOSPORINE
     Indication: Immunosuppression
     Dates: start: 20230124, end: 20230130
  16. NEORAL [Suspect]
     Active Substance: CYCLOSPORINE
     Indication: Immunosuppression
     Dates: start: 20230131, end: 20230312
  17. NEORAL [Suspect]
     Active Substance: CYCLOSPORINE
     Indication: Immunosuppression
     Dates: start: 20230313, end: 20230329
  18. NEORAL [Suspect]
     Active Substance: CYCLOSPORINE
     Indication: Immunosuppression
     Dates: start: 20230330, end: 20230412
  19. NEORAL [Suspect]
     Active Substance: CYCLOSPORINE
     Indication: Immunosuppression
     Dates: start: 20220412, end: 20230415
  20. RUXOLITINIB [Suspect]
     Active Substance: RUXOLITINIB
     Indication: Acute graft versus host disease
     Dosage: STRENGTH: 5 MG
     Dates: start: 20240327

REACTIONS (1)
  - Dilated cardiomyopathy [Not Recovered/Not Resolved]

NARRATIVE: CASE EVENT DATE: 20250114
